FAERS Safety Report 4903485-7 (Version None)
Quarter: 2006Q1

REPORT INFORMATION
  Report Type: 
  Country: None (occurrence: None)
  Receive Date: 20060208
  Receipt Date: 20060125
  Transmission Date: 20060701
  Serious: Yes (Death)
  Sender: FDA-Public Use
  Company Number: ZA-BOEHRINGER INGELHEIM PHARMACEUTICALS, INC.-2006-DE-00403GD

PATIENT

DRUGS (3)
  1. NEVIRAPINE [Suspect]
     Indication: RETROVIRAL INFECTION
  2. STAVUDINE [Suspect]
     Indication: RETROVIRAL INFECTION
  3. LAMIVUDINE [Suspect]
     Indication: RETROVIRAL INFECTION

REACTIONS (2)
  - RASH [None]
  - SEPSIS [None]
